FAERS Safety Report 19891343 (Version 1)
Quarter: 2021Q3

REPORT INFORMATION
  Report Type: Spontaneous
  Country: US (occurrence: US)
  Receive Date: 20210928
  Receipt Date: 20210928
  Transmission Date: 20211014
  Serious: No
  Sender: FDA-Public Use
  Company Number: US-ASTRAZENECA-2021A720398

PATIENT
  Age: 73 Year
  Sex: Female
  Weight: 45.8 kg

DRUGS (1)
  1. SYMBICORT [Suspect]
     Active Substance: BUDESONIDE\FORMOTEROL FUMARATE DIHYDRATE
     Indication: CHRONIC OBSTRUCTIVE PULMONARY DISEASE
     Dosage: 160/4,5 UNKNOWN DOSE, DAILY
     Route: 055
     Dates: start: 2018

REACTIONS (4)
  - Asthenia [Not Recovered/Not Resolved]
  - Off label use [Unknown]
  - Inability to afford medication [Unknown]
  - Intentional device use issue [Not Recovered/Not Resolved]

NARRATIVE: CASE EVENT DATE: 202107
